FAERS Safety Report 23258768 (Version 1)
Quarter: 2023Q4

REPORT INFORMATION
  Report Type: Spontaneous
  Country: HU (occurrence: HU)
  Receive Date: 20231204
  Receipt Date: 20231204
  Transmission Date: 20240109
  Serious: Yes (Other)
  Sender: FDA-Public Use
  Company Number: HU-ELI_LILLY_AND_COMPANY-HU202311013846

PATIENT
  Age: 78 Year

DRUGS (2)
  1. ABEMACICLIB [Suspect]
     Active Substance: ABEMACICLIB
     Indication: Breast cancer
     Dosage: 150 MG, BID
     Route: 048
     Dates: start: 20200723
  2. LETROZOLE [Concomitant]
     Active Substance: LETROZOLE
     Indication: Product used for unknown indication
     Dosage: 2.5 MG, UNKNOWN

REACTIONS (14)
  - Cardiac failure acute [Recovered/Resolved]
  - Cardiac failure acute [Recovered/Resolved]
  - Mental impairment [Unknown]
  - Tachycardia [Unknown]
  - Anaemia macrocytic [Unknown]
  - Dyspnoea exertional [Unknown]
  - Pericardial effusion [Unknown]
  - COVID-19 [Recovered/Resolved]
  - Electrocardiogram low voltage [Unknown]
  - Cough [Unknown]
  - Pneumonia [Unknown]
  - Granulocyte count decreased [Unknown]
  - White blood cell count decreased [Unknown]
  - Diarrhoea [Recovered/Resolved]

NARRATIVE: CASE EVENT DATE: 20200806
